FAERS Safety Report 14065929 (Version 1)
Quarter: 2017Q4

REPORT INFORMATION
  Report Type: Spontaneous
  Country: US (occurrence: US)
  Receive Date: 20171009
  Receipt Date: 20171009
  Transmission Date: 20180321
  Serious: No
  Sender: FDA-Public Use
  Company Number: US-BIOGEN-2017BI00467283

PATIENT
  Sex: Female

DRUGS (1)
  1. AVONEX [Suspect]
     Active Substance: INTERFERON BETA-1A
     Indication: MULTIPLE SCLEROSIS
     Route: 065
     Dates: start: 20000601, end: 20120802

REACTIONS (9)
  - Pain [Unknown]
  - Multiple sclerosis [Not Recovered/Not Resolved]
  - Glaucoma [Unknown]
  - Drug effect decreased [Unknown]
  - Lethargy [Unknown]
  - Speech disorder [Unknown]
  - Multiple sclerosis relapse [Unknown]
  - Urinary incontinence [Unknown]
  - Asthenia [Unknown]
